FAERS Safety Report 4649849-0 (Version None)
Quarter: 2005Q2

REPORT INFORMATION
  Report Type: 
  Country: None (occurrence: None)
  Receive Date: 20050427
  Receipt Date: 20050411
  Transmission Date: 20051028
  Serious: Yes (Death, Life-Threatening)
  Sender: FDA-Public Use
  Company Number: JP_050205906

PATIENT
  Age: 59 Year
  Sex: Male
  Weight: 68 kg

DRUGS (3)
  1. ONCOVIN [Suspect]
     Indication: MULTIPLE MYELOMA
     Dosage: 0.4 MG OTHER
     Route: 050
     Dates: start: 20050903, end: 20050115
  2. ADRIAMYCIN PFS [Concomitant]
  3. DECADRON (DEXAMETHASONE DODIUM PHOSPHATE) [Concomitant]

REACTIONS (25)
  - BACK PAIN [None]
  - BLOOD PRESSURE INCREASED [None]
  - BLOOD PRESSURE SYSTOLIC DECREASED [None]
  - CARDIAC ARREST [None]
  - CARDIAC FAILURE ACUTE [None]
  - CARDIOMEGALY [None]
  - DEPRESSED LEVEL OF CONSCIOUSNESS [None]
  - DISSEMINATED INTRAVASCULAR COAGULATION [None]
  - DRUG INEFFECTIVE [None]
  - DYSPNOEA [None]
  - HAEMOGLOBIN DECREASED [None]
  - HEART RATE DECREASED [None]
  - HYPERCAPNIA [None]
  - HYPOXIA [None]
  - MIOSIS [None]
  - OLIGURIA [None]
  - PNEUMONIA BACTERIAL [None]
  - PNEUMONITIS [None]
  - PULMONARY CONGESTION [None]
  - RENAL FAILURE ACUTE [None]
  - RESPIRATORY ARREST [None]
  - RESPIRATORY FAILURE [None]
  - RESTLESSNESS [None]
  - SEPTIC SHOCK [None]
  - VENTRICULAR ARRHYTHMIA [None]
